FAERS Safety Report 24641121 (Version 2)
Quarter: 2024Q4

REPORT INFORMATION
  Report Type: Report from Study
  Country: US (occurrence: US)
  Receive Date: 20241120
  Receipt Date: 20241220
  Transmission Date: 20250114
  Serious: No
  Sender: ABBVIE
  Company Number: US-ABBVIE-6005089

PATIENT
  Age: 6 Year
  Sex: Male
  Weight: 48.988 kg

DRUGS (2)
  1. RINVOQ [Suspect]
     Active Substance: UPADACITINIB
     Indication: Crohn^s disease
     Dosage: FORM STRENGTH UNITS: 30 MILLIGRAM
     Route: 050
     Dates: start: 202405
  2. RINVOQ [Suspect]
     Active Substance: UPADACITINIB
     Indication: Crohn^s disease
     Route: 048

REACTIONS (3)
  - Colitis [Recovering/Resolving]
  - Off label use [Unknown]
  - Gastrointestinal disorder [Recovering/Resolving]

NARRATIVE: CASE EVENT DATE: 20180101
